FAERS Safety Report 7874918-1 (Version None)
Quarter: 2011Q4

REPORT INFORMATION
  Report Type: 
  Country: None (occurrence: None)
  Receive Date: 20111014
  Receipt Date: 20110325
  Transmission Date: 20120403
  Serious: Yes (Other)
  Sender: FDA-Public Use
  Company Number: 1000018260

PATIENT
  Age: 25 Year
  Sex: Male
  Weight: 131.5 kg

DRUGS (3)
  1. LEXAPRO [Suspect]
     Indication: DEPRESSION
     Dosage: 10 MG (10 MG,1 IN 1 D),ORAL
     Route: 048
     Dates: start: 20101216, end: 20101217
  2. LEXAPRO [Suspect]
     Indication: ANXIETY
     Dosage: 10 MG (10 MG,1 IN 1 D),ORAL
     Route: 048
     Dates: start: 20101216, end: 20101217
  3. XANAX [Concomitant]

REACTIONS (2)
  - SUICIDAL IDEATION [None]
  - STOMATITIS [None]
